FAERS Safety Report 12083151 (Version 1)
Quarter: 2016Q1

REPORT INFORMATION
  Report Type: Spontaneous
  Country: JP (occurrence: JP)
  Receive Date: 20160217
  Receipt Date: 20160217
  Transmission Date: 20160526
  Serious: Yes (Hospitalization)
  Sender: FDA-Public Use
  Company Number: JP-DSJP-DSJ-2016-105378

PATIENT

DRUGS (2)
  1. OLMETEC [Suspect]
     Active Substance: OLMESARTAN MEDOXOMIL
     Indication: PRODUCT USED FOR UNKNOWN INDICATION
     Dosage: 20MG?2/DAY
     Route: 065
  2. CALSLOT                            /01051302/ [Concomitant]
     Dosage: 10MG?2/DAY
     Route: 065

REACTIONS (1)
  - Blood pressure increased [Not Recovered/Not Resolved]
